FAERS Safety Report 17873121 (Version 1)
Quarter: 2020Q2

REPORT INFORMATION
  Report Type: Spontaneous
  Country: US (occurrence: US)
  Receive Date: 20200608
  Receipt Date: 20200608
  Transmission Date: 20200714
  Serious: No
  Sender: FDA-Public Use
  Company Number: US-GILEAD-2020-0470803

PATIENT
  Age: 57 Year
  Sex: Female

DRUGS (3)
  1. MULTIPLE VITAMINS [Concomitant]
     Active Substance: VITAMINS
  2. ECHINACEA [ECHINACEA ANGUSTIFOLIA ROOT] [Concomitant]
  3. SOFOSBUVIR;VELPATASVIR [Suspect]
     Active Substance: SOFOSBUVIR\VELPATASVIR
     Indication: CHRONIC HEPATITIS C
     Dosage: 1 DOSAGE FORM, QD
     Route: 048
     Dates: start: 202003, end: 20200527

REACTIONS (1)
  - Headache [Recovered/Resolved]

NARRATIVE: CASE EVENT DATE: 202003
